FAERS Safety Report 9332350 (Version 4)
Quarter: 2013Q4

REPORT INFORMATION
  Report Type: Spontaneous
  Country: US (occurrence: US)
  Receive Date: 20130606
  Receipt Date: 20131007
  Transmission Date: 20140711
  Serious: Yes (Hospitalization, Other)
  Sender: FDA-Public Use
  Company Number: US-SHIRE-ALL1-2013-03564

PATIENT
  Age: 74 Year
  Sex: Female
  Weight: 58.96 kg

DRUGS (7)
  1. LIALDA [Suspect]
     Indication: GASTROINTESTINAL DISORDER
     Dosage: UNK, UNKNOWN
     Route: 048
     Dates: end: 2013
  2. LIPITOR [Suspect]
     Indication: BLOOD CHOLESTEROL INCREASED
     Dosage: 20 MG, 1X/DAY:QD
     Route: 065
  3. CELEBREX [Suspect]
     Indication: ARTHRITIS
     Dosage: 200 MG, 1X/DAY:QD
     Route: 065
  4. NORVASC [Suspect]
     Indication: HYPERTENSION
     Dosage: 10 MG, 1X/DAY:QD
     Route: 065
  5. PREDNISONE [Suspect]
     Indication: PRODUCT USED FOR UNKNOWN INDICATION
     Dosage: UNK, UNKNOWN
     Route: 065
  6. ALLOPURINOL [Suspect]
     Indication: PRODUCT USED FOR UNKNOWN INDICATION
     Dosage: UNK, UNKNOWN
     Route: 065
  7. BABY ASPIRIN [Concomitant]
     Indication: PRODUCT USED FOR UNKNOWN INDICATION
     Dosage: 81 MG, 1X/DAY:QD
     Route: 065

REACTIONS (8)
  - Coma [Unknown]
  - Staphylococcal infection [Unknown]
  - Cataract [Unknown]
  - Pupillary disorder [Unknown]
  - Macular degeneration [Unknown]
  - Irritable bowel syndrome [Unknown]
  - Colitis ulcerative [Unknown]
  - Rash [Unknown]
